FAERS Safety Report 7126346 (Version 2)
Quarter: 2013Q4

REPORT INFORMATION
  Report Type: Spontaneous
  Country: BR (occurrence: BR)
  Receive Date: 20090923
  Receipt Date: 20131212
  Transmission Date: 20140711
  Serious: No
  Sender: FDA-Public Use
  Company Number: BR-JNJFOC-20090905859

PATIENT
  Age: 57 Year
  Sex: Female
  Weight: 23.59 kg

DRUGS (1)
  1. DUROGESIC [Suspect]
     Indication: SPINAL PAIN
     Route: 062
     Dates: end: 200908

REACTIONS (2)
  - Drug prescribing error [Recovered/Resolved]
  - Inappropriate schedule of drug administration [Unknown]
